FAERS Safety Report 5639107-X (Version None)
Quarter: 2008Q1

REPORT INFORMATION
  Report Type: 
  Country: None (occurrence: None)
  Receive Date: 20080226
  Receipt Date: 20080215
  Transmission Date: 20080703
  Serious: Yes (Hospitalization)
  Sender: FDA-Public Use
  Company Number: US-ELI_LILLY_AND_COMPANY-US200710005412

PATIENT
  Age: 72 Year
  Sex: Female
  Weight: 69.388 kg

DRUGS (6)
  1. EVISTA [Suspect]
     Dosage: 60 MG, DAILY (1/D)
     Dates: start: 20000101, end: 20070801
  2. FORTEO [Concomitant]
     Indication: MULTIPLE FRACTURES
     Dates: start: 20070501
  3. CALCIUM [Concomitant]
     Dosage: 1500 MG, UNK
  4. VITAMIN D [Concomitant]
     Dosage: 1000 IU, UNK
  5. PREVACID [Concomitant]
  6. PROPRANOLOL HCL W/HYDROCHLOROTHIAZIDE [Concomitant]
     Indication: HYPERTENSION

REACTIONS (7)
  - ANKLE FRACTURE [None]
  - FOOT FRACTURE [None]
  - HOT FLUSH [None]
  - LUMBAR SPINAL STENOSIS [None]
  - MULTIPLE FRACTURES [None]
  - ONYCHOCLASIS [None]
  - SPONDYLOLISTHESIS [None]
